FAERS Safety Report 25986046 (Version 1)
Quarter: 2025Q4

REPORT INFORMATION
  Report Type: Spontaneous
  Country: US (occurrence: US)
  Receive Date: 20251101
  Receipt Date: 20251101
  Transmission Date: 20260118
  Serious: No
  Sender: NOVARTIS
  Company Number: US-002147023-NVSC2025US167961

PATIENT

DRUGS (1)
  1. LEQVIO [Suspect]
     Active Substance: INCLISIRAN SODIUM
     Indication: Low density lipoprotein increased
     Dosage: 284 MG, ONCE/SINGLE
     Route: 030
     Dates: start: 20251028, end: 20251028

REACTIONS (1)
  - Injection site reaction [Recovered/Resolved]

NARRATIVE: CASE EVENT DATE: 20251028
